FAERS Safety Report 7374788-4 (Version None)
Quarter: 2011Q1

REPORT INFORMATION
  Report Type: 
  Country: None (occurrence: None)
  Receive Date: 20110325
  Receipt Date: 20101129
  Transmission Date: 20110831
  Serious: No
  Sender: FDA-Public Use
  Company Number: US-MYLANLABS-2010S1020788

PATIENT
  Age: 47 Year
  Sex: Male

DRUGS (5)
  1. FENTANYL-100 [Suspect]
     Indication: PAIN
     Dosage: Q48H
     Route: 062
     Dates: start: 20100901
  2. OXYCODONE [Concomitant]
  3. PREDNISONE [Concomitant]
  4. COMBIVENT [Concomitant]
  5. ROXICODONE [Concomitant]

REACTIONS (8)
  - RASH MACULAR [None]
  - HANGOVER [None]
  - PRURITUS [None]
  - DRUG INEFFECTIVE [None]
  - PAIN [None]
  - DIZZINESS [None]
  - WRONG TECHNIQUE IN DRUG USAGE PROCESS [None]
  - DRUG EFFECT INCREASED [None]
